FAERS Safety Report 9723273 (Version 2)
Quarter: 2013Q4

REPORT INFORMATION
  Report Type: Spontaneous
  Country: FR (occurrence: FR)
  Receive Date: 20131202
  Receipt Date: 20131202
  Transmission Date: 20140711
  Serious: Yes (Death, Life-Threatening)
  Sender: FDA-Public Use
  Company Number: FR-PFIZER INC-2013283050

PATIENT
  Age: 84 Year
  Sex: Male

DRUGS (21)
  1. TAZOCILLINE [Suspect]
     Dosage: UNK
     Dates: start: 20130821, end: 20130923
  2. TAZOCILLINE [Suspect]
     Dosage: UNK
     Dates: start: 20130925, end: 20130927
  3. CORDARONE [Suspect]
     Dosage: UNK
     Dates: start: 20130828
  4. MOPRAL [Suspect]
     Dosage: UNK
     Dates: end: 20130827
  5. INEXIUM [Suspect]
     Dosage: UNK
     Dates: end: 20130820
  6. OFLOCET [Suspect]
     Indication: COUGH
     Dosage: UNK
     Dates: start: 20130729, end: 20130812
  7. OFLOCET [Suspect]
     Indication: PYREXIA
  8. ROCEPHINE [Suspect]
     Indication: RESPIRATORY DISTRESS
     Dosage: UNK
     Dates: start: 20130818, end: 20130821
  9. CIFLOX [Suspect]
     Indication: RESPIRATORY DISTRESS
     Dosage: UNK
     Dates: start: 20130818, end: 20130821
  10. RULID [Suspect]
     Dosage: UNK
     Dates: start: 20130821, end: 20130829
  11. LASILIX [Suspect]
     Dosage: UNK
     Dates: start: 20130826, end: 20130927
  12. MONO-TILDIEM [Concomitant]
     Dosage: UNK
  13. JOSIR [Concomitant]
     Dosage: UNK
  14. INORIAL [Concomitant]
     Dosage: UNK
  15. SPIRIVA [Concomitant]
     Dosage: UNK
  16. ARESTAL [Concomitant]
     Indication: COUGH
     Dosage: UNK
     Dates: start: 20130729
  17. ARESTAL [Concomitant]
     Indication: PYREXIA
  18. PNEUMOREL [Concomitant]
     Indication: COUGH
     Dosage: UNK
     Dates: start: 20130729
  19. PNEUMOREL [Concomitant]
     Indication: PYREXIA
  20. DEXERYL [Concomitant]
     Indication: COUGH
     Dosage: UNK
     Dates: start: 20130729
  21. DEXERYL [Concomitant]
     Indication: PYREXIA

REACTIONS (5)
  - Bone marrow failure [Fatal]
  - Multi-organ failure [Fatal]
  - Death [Fatal]
  - Agranulocytosis [Not Recovered/Not Resolved]
  - Septic shock [Not Recovered/Not Resolved]
